FAERS Safety Report 5834489-8 (Version None)
Quarter: 2008Q3

REPORT INFORMATION
  Report Type: 
  Country: None (occurrence: None)
  Receive Date: 20080805
  Receipt Date: 20080713
  Transmission Date: 20090109
  Serious: No
  Sender: FDA-Public Use
  Company Number: US-BOEHRINGER INGELHEIM GMBH, GERMANY-2008-BP-11010BP

PATIENT
  Sex: Female

DRUGS (4)
  1. MIRAPEX [Suspect]
  2. ADVIL [Concomitant]
  3. DOXEPIN HCL [Concomitant]
  4. FLEXERIL [Concomitant]

REACTIONS (1)
  - PAIN [None]
